FAERS Safety Report 7410148-5 (Version None)
Quarter: 2011Q2

REPORT INFORMATION
  Report Type: 
  Country: None (occurrence: None)
  Receive Date: 20110412
  Receipt Date: 20110321
  Transmission Date: 20111010
  Serious: Yes (Hospitalization)
  Sender: FDA-Public Use
  Company Number: MX-ABBOTT-11P-107-0713176-00

PATIENT
  Sex: Female

DRUGS (3)
  1. RITONAVIR ORAL SOLUTION [Suspect]
     Indication: HIV INFECTION
     Route: 048
  2. ATAZANAVIR [Concomitant]
     Indication: HIV INFECTION
     Route: 048
  3. ISONIAZID [Concomitant]
     Indication: PROPHYLAXIS
     Dates: start: 20101001

REACTIONS (2)
  - MYOCARDITIS [None]
  - PNEUMONIA [None]
